FAERS Safety Report 13422543 (Version 1)
Quarter: 2017Q2

REPORT INFORMATION
  Report Type: Spontaneous
  Country: US (occurrence: US)
  Receive Date: 20170407
  Receipt Date: 20170407
  Transmission Date: 20170830
  Serious: Yes (Other)
  Sender: FDA-Public Use
  Company Number: None

PATIENT
  Age: 70 Year
  Sex: Female

DRUGS (16)
  1. VASOTEC [Concomitant]
     Active Substance: ENALAPRIL MALEATE
  2. LEVOTHYROXINE. [Concomitant]
     Active Substance: LEVOTHYROXINE
  3. ZETIA [Concomitant]
     Active Substance: EZETIMIBE
  4. ASPIRIN. [Concomitant]
     Active Substance: ASPIRIN
  5. RANITIDINE. [Concomitant]
     Active Substance: RANITIDINE
  6. FLAXSEED OIL CAPS [Concomitant]
  7. LETROZOLE. [Concomitant]
     Active Substance: LETROZOLE
  8. TUMERIC [Concomitant]
     Active Substance: HERBALS\TURMERIC
  9. MAXZIDE [Concomitant]
     Active Substance: HYDROCHLOROTHIAZIDE\TRIAMTERENE
  10. LIPITOR [Concomitant]
     Active Substance: ATORVASTATIN CALCIUM
  11. NOVOLOG [Concomitant]
     Active Substance: INSULIN ASPART
  12. LOPRESSOR [Concomitant]
     Active Substance: METOPROLOL TARTRATE
  13. VITAMIN D [Concomitant]
     Active Substance: CHOLECALCIFEROL
  14. VITAMIN C (ESTHER) [Concomitant]
  15. LEVEMIR [Concomitant]
     Active Substance: INSULIN DETEMIR
  16. IBRANCE [Suspect]
     Active Substance: PALBOCICLIB
     Indication: BREAST CANCER
     Route: 048
     Dates: start: 20170117, end: 20170407

REACTIONS (1)
  - Pain in extremity [None]

NARRATIVE: CASE EVENT DATE: 20170324
